FAERS Safety Report 7206180-7 (Version None)
Quarter: 2010Q4

REPORT INFORMATION
  Report Type: 
  Country: None (occurrence: None)
  Receive Date: 20101217
  Receipt Date: 20101203
  Transmission Date: 20110411
  Serious: Yes (Hospitalization)
  Sender: FDA-Public Use
  Company Number: 8047504

PATIENT
  Sex: Female
  Weight: 50.5 kg

DRUGS (10)
  1. CERTOLIZUMAB PEGOL (CERTOLIZUMAB PEGOL) [Suspect]
     Indication: RHEUMATOID ARTHRITIS
     Dosage: (200 MG 1X/2 WEEKS SUBCUTANEOUS)
     Route: 058
     Dates: start: 20090223, end: 20090518
  2. PREDONINE /00016201/ (PREDONINE) [Suspect]
     Indication: RHEUMATOID ARTHRITIS
     Dosage: (10 MG ORAL), (18 MG ORAL)
     Route: 048
     Dates: start: 20061101, end: 20090101
  3. PREDONINE /00016201/ (PREDONINE) [Suspect]
     Indication: RHEUMATOID ARTHRITIS
     Dosage: (10 MG ORAL), (18 MG ORAL)
     Route: 048
     Dates: start: 20090101
  4. FOLIC ACID [Concomitant]
  5. ISONIAZID [Concomitant]
  6. TEPRENONE [Concomitant]
  7. ALENDRONATE SODIUM [Concomitant]
  8. LOXOPROFEN SODIUM [Concomitant]
  9. PYRIDOXAL PHOSPHATE [Concomitant]
  10. RHEUMATREX [Suspect]
     Indication: RHEUMATOID ARTHRITIS
     Dates: start: 20081118, end: 20090527

REACTIONS (12)
  - ANTIBIOTIC RESISTANT STAPHYLOCOCCUS TEST POSITIVE [None]
  - BACTERIAL INFECTION [None]
  - DEHYDRATION [None]
  - FIBULA FRACTURE [None]
  - GAS GANGRENE [None]
  - HAEMATOTOXICITY [None]
  - JOINT SWELLING [None]
  - POST PROCEDURAL INFECTION [None]
  - PSEUDOMONAS TEST POSITIVE [None]
  - PYELONEPHRITIS [None]
  - PYOMYOSITIS [None]
  - UROSEPSIS [None]
